FAERS Safety Report 7416830-8 (Version None)
Quarter: 2011Q2

REPORT INFORMATION
  Report Type: 
  Country: None (occurrence: None)
  Receive Date: 20110415
  Receipt Date: 20110404
  Transmission Date: 20111010
  Serious: Yes (Death, Life-Threatening, Hospitalization, Other)
  Sender: FDA-Public Use
  Company Number: US-ELI_LILLY_AND_COMPANY-US201011007235

PATIENT
  Sex: Female
  Weight: 76.19 kg

DRUGS (19)
  1. METOPROLOL TARTRATE [Concomitant]
  2. VITAMIN D [Concomitant]
  3. NAPROSYN [Concomitant]
  4. GABAPENTIN [Concomitant]
  5. TUMS [Concomitant]
  6. ALLOPURINOL [Concomitant]
  7. LANTUS [Concomitant]
  8. FORTEO [Suspect]
     Indication: OSTEOPOROSIS
     Dosage: 20 UG, DAILY (1/D)
  9. FUROSEMIDE [Concomitant]
     Dosage: 10 MG, EACH EVENING
  10. FUROSEMIDE [Concomitant]
     Dosage: 20 MG, EACH MORNING
  11. METOLAZONE [Concomitant]
  12. COLCHICINE [Concomitant]
  13. ISOSORBIDE DINITRATE [Concomitant]
  14. NITROGLYCERIN [Concomitant]
     Dosage: UNK, AS NEEDED
  15. HUMALOG [Concomitant]
  16. CLONAZEPAM [Concomitant]
  17. VICODIN [Concomitant]
  18. FORTEO [Suspect]
     Dosage: 20 UG, DAILY (1/D)
  19. PRAVASTATIN [Concomitant]

REACTIONS (23)
  - DIZZINESS [None]
  - HYPERSENSITIVITY [None]
  - PAIN IN EXTREMITY [None]
  - MUSCULOSKELETAL PAIN [None]
  - GRIP STRENGTH DECREASED [None]
  - HYPOKALAEMIA [None]
  - HEAD INJURY [None]
  - APPARENT DEATH [None]
  - MYOCARDIAL INFARCTION [None]
  - HOSPITALISATION [None]
  - MUSCLE SPASMS [None]
  - NAUSEA [None]
  - SPUTUM DISCOLOURED [None]
  - HYPOGLYCAEMIA [None]
  - PNEUMONIA [None]
  - LIMB INJURY [None]
  - FALL [None]
  - DYSPNOEA [None]
  - MALAISE [None]
  - CARDIO-RESPIRATORY ARREST [None]
  - BLOOD POTASSIUM INCREASED [None]
  - PRODUCTIVE COUGH [None]
  - MOVEMENT DISORDER [None]
